FAERS Safety Report 5990656-4 (Version None)
Quarter: 2008Q4

REPORT INFORMATION
  Report Type: 
  Country: None (occurrence: None)
  Receive Date: 20081211
  Receipt Date: 20081201
  Transmission Date: 20090506
  Serious: Yes (Hospitalization)
  Sender: FDA-Public Use
  Company Number: PHHY2008FR30688

PATIENT
  Sex: Female

DRUGS (7)
  1. TAREG [Suspect]
     Dosage: 160 MG, QD
     Route: 048
     Dates: start: 20071211, end: 20080128
  2. HEMIGOXINE NATIVELLE [Suspect]
     Dosage: 1 DF, QD
     Route: 048
     Dates: start: 20071211, end: 20080128
  3. ALDALIX [Suspect]
     Dosage: 1 DF, QD
     Route: 048
     Dates: start: 20071211, end: 20080128
  4. CORDARONE [Suspect]
     Dosage: 1 DF, QD
     Route: 048
     Dates: start: 20041201
  5. TEMESTA [Concomitant]
     Dosage: 2.5 MG, QD
     Route: 048
  6. CRESTOR [Concomitant]
     Dosage: 10 MG, QD
     Route: 048
  7. COUMADIN [Concomitant]
     Dosage: 2 DF, QD
     Route: 048

REACTIONS (10)
  - ATRIOVENTRICULAR BLOCK [None]
  - BLOOD CREATININE INCREASED [None]
  - BRADYCARDIA [None]
  - CARDIOACTIVE DRUG LEVEL INCREASED [None]
  - DRUG INTERACTION [None]
  - ELECTROCARDIOGRAM QRS COMPLEX SHORTENED [None]
  - ORTHOPNOEA [None]
  - RENAL FAILURE [None]
  - SINOATRIAL BLOCK [None]
  - VENTRICULAR EXTRASYSTOLES [None]
